FAERS Safety Report 7484020-9 (Version None)
Quarter: 2011Q2

REPORT INFORMATION
  Report Type: 
  Country: None (occurrence: None)
  Receive Date: 20110517
  Receipt Date: 20110510
  Transmission Date: 20111010
  Serious: Yes (Other)
  Sender: FDA-Public Use
  Company Number: US-SANOFI-AVENTIS-2011SA029634

PATIENT
  Age: 30 Year
  Sex: Female

DRUGS (1)
  1. FERRLECIT [Suspect]
     Route: 051
     Dates: start: 20110510, end: 20110510

REACTIONS (7)
  - FLUSHING [None]
  - NAUSEA [None]
  - HYPOAESTHESIA ORAL [None]
  - ANAPHYLACTIC REACTION [None]
  - EYE SWELLING [None]
  - LACRIMATION INCREASED [None]
  - HEART RATE INCREASED [None]
